FAERS Safety Report 6389488-7 (Version None)
Quarter: 2009Q4

REPORT INFORMATION
  Report Type: 
  Country: None (occurrence: None)
  Receive Date: 20091006
  Receipt Date: 20090924
  Transmission Date: 20100525
  Serious: Yes (Disabling, Other)
  Sender: FDA-Public Use
  Company Number: FI-ROCHE-655857

PATIENT
  Age: 53 Year
  Sex: Female

DRUGS (2)
  1. ROFERON-A [Suspect]
     Route: 058
     Dates: start: 20030612
  2. HYDREA [Concomitant]
     Dosage: DRUG REPORTED AS HYDROXYUREA.
     Route: 048
     Dates: start: 19961101

REACTIONS (4)
  - BLINDNESS UNILATERAL [None]
  - CORONARY ARTERY DISEASE [None]
  - GLAUCOMA [None]
  - TINNITUS [None]
